FAERS Safety Report 4596261-9 (Version None)
Quarter: 2005Q1

REPORT INFORMATION
  Report Type: 
  Country: None (occurrence: None)
  Receive Date: 20050302
  Receipt Date: 20050223
  Transmission Date: 20050727
  Serious: Yes (Hospitalization)
  Sender: FDA-Public Use
  Company Number: US-JNJFOC-20050206232

PATIENT
  Sex: Female
  Weight: 61.69 kg

DRUGS (8)
  1. DURAGESIC-100 [Suspect]
     Route: 062
  2. OXYCONTIN [Concomitant]
     Route: 049
  3. ACTIQ [Concomitant]
     Indication: PAIN
     Dosage: AS NEEDED
     Route: 049
  4. NEURONTIN [Concomitant]
     Indication: PAIN
     Route: 049
  5. EFFEXOR XR [Concomitant]
     Indication: DEPRESSION
     Route: 049
  6. WELLBUTRIN [Concomitant]
     Indication: DEPRESSION
     Route: 049
  7. PREDNISONE [Concomitant]
     Indication: RETROPERITONEAL FIBROSIS
     Route: 049
  8. PREDNISONE [Concomitant]
     Route: 049

REACTIONS (6)
  - ALOPECIA [None]
  - APPLICATION SITE DERMATITIS [None]
  - DYSPHONIA [None]
  - LICHENIFICATION [None]
  - MENISCUS LESION [None]
  - UTERINE PROLAPSE [None]
